FAERS Safety Report 17202989 (Version 1)
Quarter: 2019Q4

REPORT INFORMATION
  Report Type: Spontaneous
  Country: US (occurrence: US)
  Receive Date: 20191204
  Receipt Date: 20191204
  Transmission Date: 20200122
  Serious: Yes (Hospitalization)
  Sender: FDA-Public Use
  Company Number: None

PATIENT
  Age: 65 Year
  Sex: Female
  Weight: 69.1 kg

DRUGS (1)
  1. ASPIRIN. [Suspect]
     Active Substance: ASPIRIN
     Dates: end: 20191125

REACTIONS (13)
  - Rib fracture [None]
  - Traumatic pancreatitis [None]
  - Femur fracture [None]
  - Splenic haematoma [None]
  - Ecchymosis [None]
  - Multiple injuries [None]
  - Acetabulum fracture [None]
  - Skin abrasion [None]
  - Contusion [None]
  - Swelling [None]
  - Road traffic accident [None]
  - Pelvic haematoma [None]
  - Sternal fracture [None]

NARRATIVE: CASE EVENT DATE: 20191126
